FAERS Safety Report 23588704 (Version 1)
Quarter: 2024Q1

REPORT INFORMATION
  Report Type: Spontaneous
  Country: US (occurrence: US)
  Receive Date: 20240302
  Receipt Date: 20240302
  Transmission Date: 20240410
  Serious: No
  Sender: FDA-Public Use
  Company Number: US-GSK-US2024025085

PATIENT
  Age: 75 Year
  Sex: Female

DRUGS (3)
  1. ANORO ELLIPTA [Suspect]
     Active Substance: UMECLIDINIUM BROMIDE\VILANTEROL TRIFENATATE
     Indication: Emphysema
     Dosage: UNK
     Dates: start: 20240101
  2. OMEPRAZOLE [Concomitant]
     Active Substance: OMEPRAZOLE
     Indication: Barrett^s oesophagus
     Dosage: UNK
  3. AMLODIPINE [Concomitant]
     Active Substance: AMLODIPINE BESYLATE
     Indication: Hypertension
     Dosage: UNK
     Dates: start: 202301

REACTIONS (2)
  - Eye pain [Not Recovered/Not Resolved]
  - Periorbital pain [Unknown]

NARRATIVE: CASE EVENT DATE: 20240201
